FAERS Safety Report 20327682 (Version 1)
Quarter: 2022Q1

REPORT INFORMATION
  Report Type: Spontaneous
  Country: CN (occurrence: CN)
  Receive Date: 20220112
  Receipt Date: 20220112
  Transmission Date: 20220424
  Serious: Yes (Other)
  Sender: FDA-Public Use
  Company Number: CN-SA-SAC20220107000877

PATIENT
  Age: 34 Year
  Sex: Female
  Weight: 47 kg

DRUGS (4)
  1. OXALIPLATIN [Suspect]
     Active Substance: OXALIPLATIN
     Indication: Signet-ring cell carcinoma
     Dosage: 200 MG, QD
     Route: 041
     Dates: start: 20211213, end: 20211213
  2. BEVACIZUMAB [Suspect]
     Active Substance: BEVACIZUMAB
     Indication: Signet-ring cell carcinoma
     Dosage: 400 MG, QD
     Route: 041
     Dates: start: 20211213, end: 20211213
  3. SODIUM CHLORIDE [Concomitant]
     Active Substance: SODIUM CHLORIDE
     Dosage: 100 ML, QD
     Route: 041
     Dates: start: 20211213, end: 20211213
  4. DEXTROSE [Concomitant]
     Active Substance: DEXTROSE
     Dosage: 250 ML, QD
     Route: 041
     Dates: start: 20211213, end: 20211213

REACTIONS (5)
  - Quadriplegia [Recovering/Resolving]
  - Laryngeal discomfort [Recovered/Resolved]
  - Skin warm [Recovered/Resolved]
  - Dysarthria [Recovered/Resolved]
  - Hypoaesthesia [Recovered/Resolved]

NARRATIVE: CASE EVENT DATE: 20211213
